FAERS Safety Report 7175615-0 (Version None)
Quarter: 2010Q4

REPORT INFORMATION
  Report Type: 
  Country: None (occurrence: None)
  Receive Date: 20101220
  Receipt Date: 20100324
  Transmission Date: 20110411
  Serious: Yes (Other)
  Sender: FDA-Public Use
  Company Number: US-AMGEN-QUU401880

PATIENT

DRUGS (5)
  1. ENBREL [Suspect]
     Indication: RHEUMATOID ARTHRITIS
     Dosage: 50 MG, QWK
     Route: 058
  2. HYDROXYCHLOROQUINE SULFATE [Concomitant]
     Dosage: 400 MG, QD
     Route: 048
  3. METHOTREXATE [Concomitant]
  4. RITUXIMAB [Concomitant]
  5. ABATACEPT (BRISTOL-MYERS SQUIBB) [Concomitant]
     Dosage: UNK UNK, UNK
     Dates: start: 20090101, end: 20090101

REACTIONS (8)
  - DIARRHOEA [None]
  - HEPATIC ENZYME INCREASED [None]
  - HYPERSENSITIVITY [None]
  - INJECTION SITE PAIN [None]
  - MIGRAINE [None]
  - PAIN [None]
  - SINUSITIS [None]
  - VOMITING [None]
